FAERS Safety Report 18402272 (Version 1)
Quarter: 2020Q4

REPORT INFORMATION
  Report Type: Spontaneous
  Country: US (occurrence: US)
  Receive Date: 20201019
  Receipt Date: 20201019
  Transmission Date: 20210114
  Serious: No
  Sender: FDA-Public Use
  Company Number: US-PFIZER INC-2020400812

PATIENT
  Age: 66 Year
  Sex: Female
  Weight: 78.93 kg

DRUGS (1)
  1. PHENYTOIN SODIUM. [Suspect]
     Active Substance: PHENYTOIN SODIUM
     Indication: PETIT MAL EPILEPSY
     Dosage: 10 MG, 2X/DAY
     Route: 048
     Dates: start: 2010, end: 2010

REACTIONS (1)
  - Drug ineffective [Recovered/Resolved]

NARRATIVE: CASE EVENT DATE: 2010
